FAERS Safety Report 10450434 (Version 1)
Quarter: 2014Q3

REPORT INFORMATION
  Report Type: Spontaneous
  Country: US (occurrence: None)
  Receive Date: 20140910
  Receipt Date: 20140910
  Transmission Date: 20150326
  Serious: Yes (Other)
  Sender: FDA-Public Use
  Company Number: 2014-US-011210

PATIENT
  Age: 64 Year
  Sex: Male

DRUGS (1)
  1. XYREM [Suspect]
     Active Substance: SODIUM OXYBATE
     Indication: APNOEA
     Route: 048
     Dates: start: 201009

REACTIONS (3)
  - Spinal decompression [None]
  - Intestinal perforation [None]
  - Off label use [None]

NARRATIVE: CASE EVENT DATE: 201408
